FAERS Safety Report 7118654-8 (Version None)
Quarter: 2010Q4

REPORT INFORMATION
  Report Type: 
  Country: None (occurrence: None)
  Receive Date: 20101027
  Receipt Date: 20091029
  Transmission Date: 20110411
  Serious: Yes (Other)
  Sender: FDA-Public Use
  Company Number: US-WYE-H11938809

PATIENT
  Age: 50 Year
  Sex: Female

DRUGS (2)
  1. PREMARIN [Suspect]
     Indication: VULVOVAGINAL DRYNESS
     Dosage: 1 G 1X PER 1 DAY, VAGINAL
     Route: 067
     Dates: start: 20091022
  2. TOPIRAMATE [Concomitant]

REACTIONS (2)
  - LIBIDO DECREASED [None]
  - UTERINE DISORDER [None]
